FAERS Safety Report 8991104 (Version 1)
Quarter: 2012Q4

REPORT INFORMATION
  Report Type: Spontaneous
  Country: DE (occurrence: None)
  Receive Date: 20121220
  Receipt Date: 20121220
  Transmission Date: 20130627
  Serious: Yes (Other)
  Sender: FDA-Public Use
  Company Number: GER/GER/12/0027104

PATIENT
  Age: 28 Year
  Sex: Female

DRUGS (1)
  1. METOPROLOL (METOPROLOL) [Suspect]
     Indication: MIGRAINE PROPHYLAXIS
     Dosage: Oral
     Route: 048
     Dates: start: 20110909, end: 20120529

REACTIONS (4)
  - Caesarean section [None]
  - Foetal heart rate deceleration [None]
  - Meconium in amniotic fluid [None]
  - Exposure during pregnancy [None]
